FAERS Safety Report 22269562 (Version 1)
Quarter: 2023Q2

REPORT INFORMATION
  Report Type: Spontaneous
  Country: FR (occurrence: FR)
  Receive Date: 20230501
  Receipt Date: 20230501
  Transmission Date: 20230722
  Serious: Yes (Life-Threatening)
  Sender: FDA-Public Use
  Company Number: None

PATIENT
  Age: 23 Year
  Sex: Female
  Weight: 59 kg

DRUGS (12)
  1. NOREPINEPHRINE [Interacting]
     Active Substance: NOREPINEPHRINE
     Indication: Shock
     Dosage: 123.43 MILLIGRAM, 1 TOTAL
     Route: 042
     Dates: start: 20230328, end: 20230401
  2. TERLIPRESSIN [Interacting]
     Active Substance: TERLIPRESSIN
     Indication: Shock
     Dosage: 86.6 INTERNATIONAL UNIT, 1 TOTAL
     Route: 042
     Dates: start: 20230329, end: 20230331
  3. PANTOPRAZOLE [Concomitant]
     Active Substance: PANTOPRAZOLE
     Dosage: 40 MILLIGRAM, QD
     Route: 042
     Dates: start: 20230329
  4. VANCOMYCIN [Concomitant]
     Active Substance: VANCOMYCIN
     Dosage: 2.5 GRAM, QD
     Route: 042
     Dates: start: 20230329, end: 20230404
  5. CYTARABINE [Concomitant]
     Active Substance: CYTARABINE
     Indication: Acute myeloid leukaemia
     Dosage: 3000 MILLIGRAM
     Route: 042
     Dates: start: 20230328, end: 20230328
  6. MITOXANTRONE HYDROCHLORIDE [Concomitant]
     Active Substance: MITOXANTRONE HYDROCHLORIDE
     Indication: Acute myeloid leukaemia
     Dosage: 28 MILLIGRAM
     Route: 042
     Dates: start: 20230328, end: 20230328
  7. MIDAZOLAM [Concomitant]
     Active Substance: MIDAZOLAM
     Dosage: UNK
     Route: 042
     Dates: start: 20230329, end: 20230401
  8. PIPERACILLIN SODIUM\TAZOBACTAM SODIUM [Concomitant]
     Active Substance: PIPERACILLIN SODIUM\TAZOBACTAM SODIUM
     Dosage: 16 MILLIGRAM, QD
     Route: 042
     Dates: start: 20230329, end: 20230404
  9. CLADRIBINE [Concomitant]
     Active Substance: CLADRIBINE
     Indication: Acute myeloid leukaemia
     Dosage: 8 MILLIGRAM
     Route: 042
     Dates: start: 20230328, end: 20230328
  10. FENTANYL [Concomitant]
     Active Substance: FENTANYL
     Route: 042
     Dates: start: 20230329, end: 20230401
  11. FLUDROCORTISONE [Concomitant]
     Active Substance: FLUDROCORTISONE
     Dosage: 50 MICROGRAM, QD
     Route: 048
     Dates: start: 20230328, end: 20230404
  12. DEXAMETHASONE [Concomitant]
     Active Substance: DEXAMETHASONE
     Dosage: 20 MILLIGRAM, QD
     Route: 042
     Dates: start: 20230328, end: 20230331

REACTIONS (2)
  - Stress cardiomyopathy [Recovered/Resolved]
  - Drug interaction [Recovered/Resolved]

NARRATIVE: CASE EVENT DATE: 20230330
